FAERS Safety Report 20775166 (Version 9)
Quarter: 2024Q1

REPORT INFORMATION
  Report Type: Spontaneous
  Country: ES (occurrence: ES)
  Receive Date: 20220502
  Receipt Date: 20240207
  Transmission Date: 20240410
  Serious: Yes (Hospitalization, Other)
  Sender: FDA-Public Use
  Company Number: ES-Accord-259883

PATIENT
  Age: 40 Year
  Sex: Female

DRUGS (9)
  1. FINGOLIMOD [Suspect]
     Active Substance: FINGOLIMOD
     Indication: Progressive multifocal leukoencephalopathy
     Dosage: UNK
     Route: 048
  2. FINGOLIMOD [Suspect]
     Active Substance: FINGOLIMOD
     Indication: Multiple sclerosis
  3. FINGOLIMOD [Suspect]
     Active Substance: FINGOLIMOD
     Indication: Relapsing-remitting multiple sclerosis
  4. METHYLPREDNISOLONE [Suspect]
     Active Substance: METHYLPREDNISOLONE
     Indication: Immune reconstitution inflammatory syndrome
     Dosage: 1 GRAM
     Route: 065
  5. COPAXONE [Suspect]
     Active Substance: GLATIRAMER ACETATE
     Indication: Multiple sclerosis
     Dosage: UNK
     Route: 065
  6. REBIF [Suspect]
     Active Substance: INTERFERON BETA-1A
     Indication: Multiple sclerosis
     Dosage: UNK
     Route: 065
  7. MEFLOQUINE HYDROCHLORIDE [Concomitant]
     Active Substance: MEFLOQUINE HYDROCHLORIDE
     Indication: Immune reconstitution inflammatory syndrome
     Dosage: 250 MG PER DAY
     Route: 065
  8. MIRTAZAPINE [Concomitant]
     Active Substance: MIRTAZAPINE
     Indication: Immune reconstitution inflammatory syndrome
     Dosage: 15 MG PER DAY
     Route: 065
  9. LITHIUM [Concomitant]
     Active Substance: LITHIUM
     Indication: Bipolar disorder
     Dosage: UNK
     Route: 065

REACTIONS (8)
  - Immune reconstitution inflammatory syndrome [Recovered/Resolved]
  - Lymphopenia [Recovering/Resolving]
  - Progressive multifocal leukoencephalopathy [Recovered/Resolved]
  - Drug withdrawal syndrome [Recovering/Resolving]
  - Drug ineffective [Unknown]
  - Hypersensitivity [Unknown]
  - Skin reaction [Unknown]
  - Off label use [Unknown]
